FAERS Safety Report 23023636 (Version 6)
Quarter: 2025Q4

REPORT INFORMATION
  Report Type: Spontaneous
  Country: US (occurrence: US)
  Receive Date: 20231003
  Receipt Date: 20251001
  Transmission Date: 20260117
  Serious: No
  Sender: PFIZER
  Company Number: US-PFIZER INC-PV202300163234

PATIENT
  Age: 69 Year
  Sex: Female

DRUGS (1)
  1. IBRANCE [Suspect]
     Active Substance: PALBOCICLIB
     Dosage: 125 MG, CYCLIC, ON DAYS 1 -21 OF EACH 28-DAY CYCLE
     Route: 048

REACTIONS (3)
  - Alopecia [Unknown]
  - Muscle spasms [Unknown]
  - Eye disorder [Unknown]
